FAERS Safety Report 4388211-5 (Version None)
Quarter: 2004Q2

REPORT INFORMATION
  Report Type: 
  Country: None (occurrence: None)
  Receive Date: 20040629
  Receipt Date: 20040629
  Transmission Date: 20050107
  Serious: Yes (Hospitalization, Other)
  Sender: FDA-Public Use
  Company Number: None

PATIENT
  Age: 79 Year
  Sex: Male
  Weight: 95.3 kg

DRUGS (8)
  1. INTEGRILIN [Suspect]
     Indication: ANTIPLATELET THERAPY
     Dosage: 2(8.5 ML BOLUSES)15 ML/HR IV
     Route: 042
     Dates: start: 20040622, end: 20040623
  2. MIDAZOLAM HCL [Concomitant]
  3. NITROGLYCERIN [Concomitant]
  4. ,,, [Concomitant]
  5. FENTANYL [Concomitant]
  6. ASPIRIN [Concomitant]
  7. CLOPIDOGREL [Concomitant]
  8. PEPCID [Concomitant]

REACTIONS (7)
  - ANGIOGRAM ABNORMAL [None]
  - DIVERTICULUM INTESTINAL [None]
  - FREQUENT BOWEL MOVEMENTS [None]
  - HAEMATOCHEZIA [None]
  - RECTAL HAEMORRHAGE [None]
  - STENT PLACEMENT [None]
  - VOMITING [None]
